FAERS Safety Report 6372282-0 (Version None)
Quarter: 2009Q3

REPORT INFORMATION
  Report Type: 
  Country: None (occurrence: None)
  Receive Date: 20090924
  Receipt Date: 20090914
  Transmission Date: 20100115
  Serious: Yes (Hospitalization)
  Sender: FDA-Public Use
  Company Number: US-BIOGENIDEC-2009BI029917

PATIENT
  Age: 61 Year
  Sex: Male

DRUGS (2)
  1. AVONEX [Suspect]
     Indication: MULTIPLE SCLEROSIS
     Route: 030
     Dates: start: 20080301
  2. AVONEX [Suspect]
     Route: 030

REACTIONS (5)
  - ESCHERICHIA INFECTION [None]
  - HYPOTENSION [None]
  - INFECTION [None]
  - MYOCARDIAL INFARCTION [None]
  - RENAL FAILURE [None]
